FAERS Safety Report 5705291-2 (Version None)
Quarter: 2008Q2

REPORT INFORMATION
  Report Type: 
  Country: None (occurrence: None)
  Receive Date: 20080411
  Receipt Date: 20080403
  Transmission Date: 20081010
  Serious: Yes (Other)
  Sender: FDA-Public Use
  Company Number: 2008008377

PATIENT
  Age: 75 Year
  Sex: Female
  Weight: 50.8 kg

DRUGS (1)
  1. VISINE EYE DROPS [Suspect]
     Indication: EYE DISORDER
     Dosage: A FEW DROPS ONCE   DAILY, OPHTHALMIC
     Route: 047
     Dates: start: 20080326, end: 20080401

REACTIONS (1)
  - EYE IRRITATION [None]
